FAERS Safety Report 23823111 (Version 3)
Quarter: 2024Q3

REPORT INFORMATION
  Report Type: Spontaneous
  Country: JP (occurrence: JP)
  Receive Date: 20240507
  Receipt Date: 20240704
  Transmission Date: 20241017
  Serious: Yes (Other)
  Sender: GLAXOSMITHKLINE
  Company Number: JP-GLAXOSMITHKLINE-JP2024JPN055897

PATIENT

DRUGS (9)
  1. LAMICTAL [Suspect]
     Active Substance: LAMOTRIGINE
     Indication: Bipolar disorder relapse prophylaxis
     Dosage: 12.5 MG, 1D, AFTER DINNER
     Route: 048
     Dates: start: 20240326, end: 20240402
  2. LAMICTAL [Suspect]
     Active Substance: LAMOTRIGINE
     Indication: Bipolar disorder
  3. SULPIRIDE [Concomitant]
     Active Substance: SULPIRIDE
     Indication: Bipolar disorder
     Dosage: 50 MG, BID
     Route: 048
     Dates: start: 20220817
  4. HALCION [Concomitant]
     Active Substance: TRIAZOLAM
     Indication: Bipolar disorder
     Dosage: 0.5 MG, 1D
     Route: 048
     Dates: start: 20220817
  5. ROZEREM [Concomitant]
     Active Substance: RAMELTEON
     Indication: Bipolar disorder
     Dosage: 8 MG, 1D
     Route: 048
     Dates: start: 20220817
  6. DIAZEPAM [Concomitant]
     Active Substance: DIAZEPAM
     Indication: Bipolar disorder
     Dosage: 2 MG, BID
     Route: 048
     Dates: start: 20220912
  7. LEXAPRO [Concomitant]
     Active Substance: ESCITALOPRAM OXALATE
     Indication: Bipolar disorder
     Dosage: 10 MG, 1D
     Route: 048
     Dates: start: 20221004
  8. ARIPIPRAZOLE [Concomitant]
     Active Substance: ARIPIPRAZOLE
     Indication: Bipolar disorder
     Dosage: 6 MG, 1D
     Route: 048
     Dates: start: 20231027
  9. LUDIOMIL [Concomitant]
     Active Substance: MAPROTILINE HYDROCHLORIDE
     Indication: Bipolar disorder
     Dosage: 20 MG, 1D
     Route: 048
     Dates: start: 20240209

REACTIONS (6)
  - Erythema [Recovering/Resolving]
  - Drug eruption [Recovering/Resolving]
  - Pyrexia [Recovered/Resolved]
  - Influenza [Recovered/Resolved]
  - Prescribed underdose [Unknown]
  - Off label use [Unknown]

NARRATIVE: CASE EVENT DATE: 20240402
